FAERS Safety Report 20387997 (Version 2)
Quarter: 2022Q1

REPORT INFORMATION
  Report Type: Spontaneous
  Country: RO (occurrence: RO)
  Receive Date: 20220128
  Receipt Date: 20220201
  Transmission Date: 20220423
  Serious: Yes (Hospitalization, Other)
  Sender: FDA-Public Use
  Company Number: RO-EMA-DD-20220107-varghese_v-152934

PATIENT
  Age: 35 Year
  Sex: Male

DRUGS (2)
  1. ADALIMUMAB [Suspect]
     Active Substance: ADALIMUMAB
     Indication: Psoriasis
     Dosage: UNKNOWN
     Route: 065
  2. ADALIMUMAB [Suspect]
     Active Substance: ADALIMUMAB
     Dosage: UNKNOWN
     Route: 058

REACTIONS (4)
  - Mass [Recovered/Resolved]
  - Pulmonary tuberculosis [Recovered/Resolved]
  - Tumour pseudoprogression [Recovered/Resolved]
  - Tuberculosis [Recovered/Resolved]
